FAERS Safety Report 14895981 (Version 1)
Quarter: 2018Q2

REPORT INFORMATION
  Report Type: Spontaneous
  Country: US (occurrence: US)
  Receive Date: 20180427
  Receipt Date: 20180427
  Transmission Date: 20180711
  Serious: Yes (Hospitalization)
  Sender: FDA-Public Use
  Company Number: None

PATIENT
  Age: 56 Year
  Sex: Female
  Weight: 47.3 kg

DRUGS (3)
  1. DARATUMUMAB [Suspect]
     Active Substance: DARATUMUMAB
     Indication: PLASMA CELL MYELOMA
     Route: 042
     Dates: start: 20180228, end: 20180321
  2. POMALIDOMIDE [Suspect]
     Active Substance: POMALIDOMIDE
     Indication: PLASMA CELL MYELOMA
     Route: 048
     Dates: start: 20180228, end: 20180320
  3. POMALIDOMIDE [Concomitant]
     Active Substance: POMALIDOMIDE
     Dates: start: 20180228, end: 20180321

REACTIONS (5)
  - Pyrexia [None]
  - Muscular weakness [None]
  - Respiratory failure [None]
  - Histiocytosis haematophagic [None]
  - Rash [None]

NARRATIVE: CASE EVENT DATE: 20180327
